FAERS Safety Report 7027768-2 (Version None)
Quarter: 2010Q4

REPORT INFORMATION
  Report Type: 
  Country: None (occurrence: None)
  Receive Date: 20101005
  Receipt Date: 20100924
  Transmission Date: 20110411
  Serious: Yes (Other)
  Sender: FDA-Public Use
  Company Number: US-BAXTER-2010BH002449

PATIENT
  Age: 58 Year
  Sex: Female
  Weight: 45 kg

DRUGS (14)
  1. KIOVIG [Suspect]
     Indication: DEMENTIA ALZHEIMER'S TYPE
     Route: 042
     Dates: start: 20090526, end: 20090820
  2. GAMMAGARD LIQUID [Suspect]
     Route: 042
     Dates: start: 20090903, end: 20091028
  3. ALBUMIN (HUMAN) [Suspect]
     Route: 042
     Dates: start: 20091111
  4. ARICEPT [Suspect]
     Indication: DEMENTIA ALZHEIMER'S TYPE
     Route: 048
     Dates: start: 20070301
  5. NAMENDA [Suspect]
     Indication: DEMENTIA ALZHEIMER'S TYPE
     Route: 048
     Dates: start: 20070801
  6. SERTRALINE HYDROCHLORIDE [Suspect]
     Indication: DEPRESSION
     Route: 048
     Dates: start: 20080501, end: 20090506
  7. MULTI-VITAMIN [Concomitant]
     Indication: ROUTINE HEALTH MAINTENANCE
     Route: 048
     Dates: start: 20040101
  8. FISH OIL [Concomitant]
     Indication: ROUTINE HEALTH MAINTENANCE
     Route: 048
     Dates: start: 20000101, end: 20090315
  9. ADVIL LIQUI-GELS [Concomitant]
     Indication: DISCOMFORT
     Route: 048
     Dates: start: 19990101
  10. CALCIUM [Concomitant]
     Indication: OSTEOPOROSIS PROPHYLAXIS
     Route: 048
     Dates: start: 20060101, end: 20081201
  11. METRONIDAZOLE [Concomitant]
     Indication: TOOTH ABSCESS
     Route: 048
     Dates: start: 20090615, end: 20090622
  12. AMOXICILLIN AND CLAVULANATE POTASSIUM [Concomitant]
     Indication: TOOTH ABSCESS
     Route: 048
     Dates: start: 20090615, end: 20090622
  13. PROZAC [Concomitant]
     Indication: DEPRESSION
     Route: 048
     Dates: start: 20090507, end: 20100128
  14. MIRTAZAPINE [Concomitant]
     Indication: DEPRESSION
     Route: 048
     Dates: start: 20100129

REACTIONS (1)
  - WEIGHT DECREASED [None]
